FAERS Safety Report 7876104-8 (Version None)
Quarter: 2011Q4

REPORT INFORMATION
  Report Type: 
  Country: None (occurrence: None)
  Receive Date: 20111031
  Receipt Date: 20111026
  Transmission Date: 20120403
  Serious: Yes (Other)
  Sender: FDA-Public Use
  Company Number: US-JNJFOC-20111012463

PATIENT
  Sex: Male

DRUGS (16)
  1. ABIRATERONE ACETATE [Suspect]
     Route: 048
  2. SUNITINIB MALATE [Suspect]
     Indication: PROSTATE CANCER
     Route: 065
     Dates: start: 20111011, end: 20111025
  3. ATORVASTATIN [Concomitant]
     Route: 048
  4. LEVOFLOXACIN [Concomitant]
     Route: 042
  5. LEVALBUTEROL HCL [Concomitant]
     Route: 065
  6. FLOMAX [Concomitant]
     Route: 048
  7. TYLENOL-500 [Concomitant]
     Indication: PYREXIA
     Route: 048
  8. PREDNISONE [Suspect]
     Indication: PROSTATE CANCER
     Route: 048
     Dates: start: 20110723, end: 20111025
  9. LOVENOX [Concomitant]
     Route: 058
  10. IPRATROPIUM BROMIDE [Concomitant]
     Route: 065
  11. ZOFRAN [Concomitant]
     Indication: NAUSEA
     Route: 042
  12. ABIRATERONE ACETATE [Suspect]
     Indication: PROSTATE CANCER
     Route: 048
     Dates: start: 20110723, end: 20111025
  13. ZOFRAN [Concomitant]
     Indication: VOMITING
     Route: 042
  14. OXYCODONE HCL [Concomitant]
     Indication: PAIN
     Route: 048
  15. ZOSYN [Concomitant]
     Route: 065
  16. SENOKOT [Concomitant]
     Indication: CONSTIPATION
     Route: 048

REACTIONS (1)
  - HYPOTENSION [None]
